FAERS Safety Report 6980196-8 (Version None)
Quarter: 2010Q3

REPORT INFORMATION
  Report Type: 
  Country: None (occurrence: None)
  Receive Date: 20100914
  Receipt Date: 20100831
  Transmission Date: 20110219
  Serious: Yes (Hospitalization)
  Sender: FDA-Public Use
  Company Number: SA-RANBAXY-2010RR-37877

PATIENT
  Age: 36 Year
  Sex: Female

DRUGS (10)
  1. METRONIDAZOLE [Suspect]
     Indication: HAEMATOMA INFECTION
     Dosage: UNK MG, UNK
  2. AMIODARONE HCL [Suspect]
  3. RANITIDINE [Suspect]
     Indication: GASTROOESOPHAGEAL REFLUX DISEASE
     Dosage: 150 MG, BID
     Route: 048
  4. CISAPRIDE [Suspect]
     Indication: GASTROOESOPHAGEAL REFLUX DISEASE
     Dosage: 10 MG, TID
     Dates: end: 19981207
  5. LOPERAMIDE [Concomitant]
  6. NITROFURANTOIN [Concomitant]
  7. COTRIM [Concomitant]
  8. TETRACYCLINE [Concomitant]
  9. METOCLOPROMIDE [Concomitant]
  10. ONDANSETRON [Concomitant]

REACTIONS (2)
  - DRUG INTERACTION [None]
  - TORSADE DE POINTES [None]
